FAERS Safety Report 6828671-0 (Version None)
Quarter: 2010Q3

REPORT INFORMATION
  Report Type: 
  Country: None (occurrence: None)
  Receive Date: 20100709
  Receipt Date: 20070215
  Transmission Date: 20110219
  Serious: Yes (Other)
  Sender: FDA-Public Use
  Company Number: US-PFIZER INC-2007013195

PATIENT
  Sex: Male
  Weight: 90.7 kg

DRUGS (5)
  1. CHANTIX [Suspect]
     Indication: EX-TOBACCO USER
     Dosage: DAILY
     Dates: start: 20061101
  2. PLAVIX [Suspect]
     Indication: ANTICOAGULANT THERAPY
     Dates: start: 20061101
  3. LISINOPRIL [Concomitant]
  4. ASPIRIN [Concomitant]
     Dosage: ONCE A DAY
  5. LOPRESSOR [Concomitant]

REACTIONS (1)
  - PLATELET COUNT DECREASED [None]
